FAERS Safety Report 9340339 (Version 2)
Quarter: 2013Q2

REPORT INFORMATION
  Report Type: Spontaneous
  Country: JP (occurrence: JP)
  Receive Date: 20130610
  Receipt Date: 20130610
  Transmission Date: 20140414
  Serious: Yes (Hospitalization, Other)
  Sender: FDA-Public Use
  Company Number: JP-TEVA-391527ISR

PATIENT
  Age: 83 Year
  Sex: Female

DRUGS (16)
  1. FUROSEMIDE 20MG [Suspect]
     Indication: ASCITES
     Dosage: 20 MILLIGRAM DAILY;
     Route: 048
     Dates: start: 20130305, end: 20130306
  2. PARIET [Concomitant]
     Dosage: 10 MILLIGRAM DAILY;
     Route: 048
  3. AMOBAN [Concomitant]
     Indication: INSOMNIA
     Dosage: 7.5 MILLIGRAM DAILY;
     Route: 048
  4. TOWAMIN 25MG [Concomitant]
     Dosage: 25 MILLIGRAM DAILY;
     Route: 048
  5. REPTOR 50 [Concomitant]
     Dosage: 600 MILLIGRAM DAILY;
     Route: 048
  6. GLAKAY [Concomitant]
     Dosage: 45 MILLIGRAM DAILY;
     Route: 048
  7. KANAMYCIN 250MG [Concomitant]
     Dosage: 750 MILLIGRAM DAILY;
     Route: 048
  8. VITAMEDIN COMBINATION CAPSULES [Concomitant]
     Dosage: 3 DOSAGE FORMS DAILY;
     Route: 048
  9. BIO-THREE [Concomitant]
     Dosage: 3 TABLET DAILY;
     Route: 048
  10. ALLOPURINOL [Concomitant]
     Dosage: 2 MICROGRAM/KG DAILY;
     Route: 048
  11. SAWADOL L [Concomitant]
     Dosage: 2 TABLET DAILY;
     Route: 048
  12. HYALEIN OPHTHALMIC SOLUTION [Concomitant]
     Route: 047
  13. HIRUDOID LOTION [Concomitant]
  14. LIVACT [Concomitant]
     Dosage: 3 DOSAGE FORMS DAILY;
     Route: 048
  15. AMINOLEBAN EN POWDER MIX [Concomitant]
     Dosage: 1 DOSAGE FORMS DAILY;
  16. WYPAX TABLETS [Concomitant]
     Indication: INSOMNIA
     Dosage: .5 MILLIGRAM DAILY;
     Route: 048

REACTIONS (1)
  - Conjunctivitis [Recovering/Resolving]
